FAERS Safety Report 14961760 (Version 1)
Quarter: 2018Q2

REPORT INFORMATION
  Report Type: Spontaneous
  Country: FR (occurrence: FR)
  Receive Date: 20180601
  Receipt Date: 20180601
  Transmission Date: 20180711
  Serious: Yes (Hospitalization)
  Sender: FDA-Public Use
  Company Number: FR-TEVA-2018-FR-900375

PATIENT
  Age: 59 Year
  Sex: Male
  Weight: 58 kg

DRUGS (2)
  1. DOXORUBICINE TEVA [Suspect]
     Active Substance: DOXORUBICIN
     Indication: ADENOCARCINOMA
     Route: 042
     Dates: start: 20161215, end: 20170315
  2. CISPLATINE ACCORD [Suspect]
     Active Substance: CISPLATIN
     Indication: ADENOCARCINOMA
     Route: 042
     Dates: start: 20161215, end: 20170315

REACTIONS (2)
  - Disseminated intravascular coagulation [Not Recovered/Not Resolved]
  - Anaemia [Recovered/Resolved]

NARRATIVE: CASE EVENT DATE: 20170210
